FAERS Safety Report 21075442 (Version 4)
Quarter: 2022Q3

REPORT INFORMATION
  Report Type: Spontaneous
  Country: IT (occurrence: IT)
  Receive Date: 20220713
  Receipt Date: 20220727
  Transmission Date: 20221026
  Serious: Yes (Hospitalization, Other)
  Sender: FDA-Public Use
  Company Number: IT-SHIONOGI B.V.-2022000654

PATIENT
  Sex: Male

DRUGS (1)
  1. LUSUTROMBOPAG [Suspect]
     Active Substance: LUSUTROMBOPAG
     Indication: Thrombocytopenia
     Dosage: 3 MG
     Route: 048
     Dates: start: 20220620, end: 20220626

REACTIONS (2)
  - Mesenteric vein thrombosis [Recovering/Resolving]
  - Atrial fibrillation [Unknown]

NARRATIVE: CASE EVENT DATE: 20220701
